FAERS Safety Report 20103393 (Version 1)
Quarter: 2021Q4

REPORT INFORMATION
  Report Type: Spontaneous
  Country: ES (occurrence: ES)
  Receive Date: 20211123
  Receipt Date: 20211123
  Transmission Date: 20220304
  Serious: Yes (Hospitalization)
  Sender: FDA-Public Use
  Company Number: ES-drreddys-LIT/SPN/21/0139755

PATIENT
  Age: 12 Year
  Sex: Female

DRUGS (1)
  1. EVEROLIMUS [Suspect]
     Active Substance: EVEROLIMUS
     Indication: Product used for unknown indication
     Dosage: 0.8 MILLIGRAM/SQ. METER, BID
     Route: 048

REACTIONS (4)
  - Condition aggravated [Unknown]
  - Lymphopenia [Unknown]
  - Respiratory tract infection [Unknown]
  - Drug ineffective [Unknown]
